FAERS Safety Report 7837804-9 (Version None)
Quarter: 2011Q4

REPORT INFORMATION
  Report Type: 
  Country: None (occurrence: None)
  Receive Date: 20111024
  Receipt Date: 20111018
  Transmission Date: 20120403
  Serious: Yes (Death, Other)
  Sender: FDA-Public Use
  Company Number: US-CELGENEUS-163-21880-11102110

PATIENT
  Sex: Male

DRUGS (21)
  1. VITAMIN B12/FOLIC ACID [Concomitant]
     Dosage: 1 MILLIGRAM
     Route: 065
     Dates: end: 20100811
  2. ALLOPURINOL [Concomitant]
     Dosage: 100 MILLIGRAM
     Route: 065
     Dates: end: 20100920
  3. TERAZOSIN HCL [Concomitant]
     Dosage: 5 MILLIGRAM
     Route: 065
     Dates: end: 20100811
  4. TYLENOL-500 [Concomitant]
     Route: 065
     Dates: end: 20100811
  5. GLUCOSAMINE CHONDROITIN [Concomitant]
     Dosage: 2
     Route: 065
     Dates: end: 20100811
  6. VITAMIN B6 [Concomitant]
     Dosage: 100
     Route: 065
     Dates: end: 20100811
  7. CALCIUM PLUS VITAMIN D [Concomitant]
     Dosage: 500/200
     Route: 065
     Dates: end: 20100811
  8. ASCORBIC ACID [Concomitant]
     Dosage: 500 MILLIGRAM
     Route: 065
     Dates: end: 20100811
  9. ALENDRONATE SODIUM [Concomitant]
     Dosage: 70 MILLIGRAM
     Route: 065
     Dates: end: 20100811
  10. LORAZEPAM [Concomitant]
     Dosage: .5 MILLIGRAM
     Route: 065
     Dates: end: 20100811
  11. CALCITONIN SALMON [Concomitant]
     Dosage: 200 UNIT
     Route: 065
     Dates: end: 20100811
  12. TAMSULOSIN HCL [Concomitant]
     Dosage: .4 MILLIGRAM
     Route: 065
     Dates: end: 20100811
  13. NIACIN [Concomitant]
     Dosage: 250 MILLIGRAM
     Route: 065
     Dates: end: 20100811
  14. COMPLETE SENIOR VITAMIN [Concomitant]
     Dosage: 1
     Route: 065
     Dates: end: 20100811
  15. REVLIMID [Suspect]
     Dosage: 15 MILLIGRAM
     Route: 048
     Dates: start: 20100719, end: 20100811
  16. ONDANSETRON [Concomitant]
     Dosage: 8 MILLIGRAM
     Route: 065
     Dates: end: 20100811
  17. METOPROLOL TARTRATE [Concomitant]
     Dosage: 12.5 MILLIGRAM
     Route: 065
     Dates: end: 20100811
  18. SYNTHROID [Concomitant]
     Dosage: .15 MILLIGRAM
     Route: 065
     Dates: end: 20100811
  19. COQ10 [Concomitant]
     Dosage: 100 MILLIGRAM
     Route: 065
     Dates: end: 20100811
  20. GINKO BILOBA [Concomitant]
     Dosage: 1
     Route: 065
     Dates: end: 20100811
  21. SIMVASTATIN [Concomitant]
     Dosage: 10 MILLIGRAM
     Route: 065
     Dates: end: 20100811

REACTIONS (3)
  - MYELODYSPLASTIC SYNDROME TRANSFORMATION [None]
  - RENAL FAILURE [None]
  - ACUTE MYELOID LEUKAEMIA [None]
